FAERS Safety Report 24439572 (Version 1)
Quarter: 2024Q4

REPORT INFORMATION
  Report Type: Spontaneous
  Country: FR (occurrence: FR)
  Receive Date: 20241015
  Receipt Date: 20241015
  Transmission Date: 20250115
  Serious: Yes (Hospitalization)
  Sender: ANI
  Company Number: FR-ANIPHARMA-2024-FR-000177

PATIENT
  Age: 66 Year
  Sex: Female
  Weight: 86 kg

DRUGS (20)
  1. CANDESARTAN CILEXETIL [Suspect]
     Active Substance: CANDESARTAN CILEXETIL
     Indication: Product used for unknown indication
     Dosage: 16 MILLIGRAM
  2. CHOLECALCIFEROL [Suspect]
     Active Substance: CHOLECALCIFEROL
  3. CHOLECALCIFEROL [Suspect]
     Active Substance: CHOLECALCIFEROL
  4. FOLIC ACID [Suspect]
     Active Substance: FOLIC ACID
  5. LEVOTHYROXINE [Suspect]
     Active Substance: LEVOTHYROXINE
  6. LANSOPRAZOLE [Suspect]
     Active Substance: LANSOPRAZOLE
  7. TOUJEO [Suspect]
     Active Substance: INSULIN GLARGINE
  8. NOVORAPID [Suspect]
     Active Substance: INSULIN ASPART
  9. METFORMIN [Suspect]
     Active Substance: METFORMIN HYDROCHLORIDE
  10. APIXABAN [Suspect]
     Active Substance: APIXABAN
     Dosage: 5 MILLIGRAM, BID
  11. INFLIXIMAB [Suspect]
     Active Substance: INFLIXIMAB
     Dosage: 5 MG/KG PAR CYCLE
     Route: 042
     Dates: start: 20240325, end: 20240608
  12. PREDNISONE [Suspect]
     Active Substance: PREDNISONE
     Dosage: 20 MILLIGRAM
     Route: 048
     Dates: start: 20230504
  13. FLUOXETINE [Suspect]
     Active Substance: FLUOXETINE HYDROCHLORIDE
  14. ATORVASTATIN [Suspect]
     Active Substance: ATORVASTATIN
  15. ISONIAZID\RIFAMPIN [Suspect]
     Active Substance: ISONIAZID\RIFAMPIN
  16. BACTRIM [Suspect]
     Active Substance: SULFAMETHOXAZOLE\TRIMETHOPRIM
  17. ISONIAZID [Suspect]
     Active Substance: ISONIAZID
  18. CYCLOPHOSPHAMIDE [Suspect]
     Active Substance: CYCLOPHOSPHAMIDE
  19. ACETAMINOPHEN [Suspect]
     Active Substance: ACETAMINOPHEN
  20. MAGNESIUM [Suspect]
     Active Substance: MAGNESIUM

REACTIONS (3)
  - Hepatic steatosis [Unknown]
  - Lung disorder [Unknown]
  - Off label use [Unknown]

NARRATIVE: CASE EVENT DATE: 20230504
